FAERS Safety Report 8246176-X (Version None)
Quarter: 2012Q1

REPORT INFORMATION
  Report Type: 
  Country: None (occurrence: None)
  Receive Date: 20120330
  Receipt Date: 20120323
  Transmission Date: 20120608
  Serious: Yes (Hospitalization)
  Sender: FDA-Public Use
  Company Number: PHHY2012FR025921

PATIENT
  Sex: Female
  Weight: 42 kg

DRUGS (1)
  1. FEMARA [Suspect]
     Indication: BREAST CANCER
     Dosage: 2.5 MG, UNK
     Route: 048
     Dates: start: 20120302, end: 20120309

REACTIONS (10)
  - OXYGEN SATURATION DECREASED [None]
  - CARDIAC FAILURE [None]
  - COUGH [None]
  - FATIGUE [None]
  - PULMONARY EMBOLISM [None]
  - HYPOTENSION [None]
  - PULMONARY OEDEMA [None]
  - DYSPNOEA [None]
  - ATRIAL FIBRILLATION [None]
  - TACHYCARDIA [None]
